FAERS Safety Report 5680825-5 (Version None)
Quarter: 2008Q1

REPORT INFORMATION
  Report Type: 
  Country: None (occurrence: None)
  Receive Date: 20080326
  Receipt Date: 20080317
  Transmission Date: 20080703
  Serious: Yes (Life-Threatening, Hospitalization)
  Sender: FDA-Public Use
  Company Number: GB-ABBOTT-08P-167-0443067-00

PATIENT
  Age: 11 Year
  Sex: Female

DRUGS (7)
  1. VALPROATE SODIUM [Suspect]
     Indication: EPILEPSY
     Route: 048
     Dates: start: 20020101, end: 20071001
  2. VALPROATE SODIUM [Suspect]
     Dates: start: 20071001, end: 20071030
  3. LAMOTRIGINE [Interacting]
     Indication: EPILEPSY
     Route: 048
     Dates: start: 20071011
  4. LAMOTRIGINE [Interacting]
     Dates: start: 20071001, end: 20071022
  5. ERYTHROMYCIN [Concomitant]
     Indication: DRUG USE FOR UNKNOWN INDICATION
     Route: 065
  6. TRIMETHOPRIM [Concomitant]
     Indication: URINARY TRACT INFECTION
     Route: 065
  7. HERBAL REMEDY [Concomitant]
     Indication: EPILEPSY
     Dates: start: 20020101

REACTIONS (8)
  - COAGULOPATHY [None]
  - DRUG INTERACTION [None]
  - MALAISE [None]
  - PLATELET COUNT DECREASED [None]
  - RHABDOMYOLYSIS [None]
  - SEPSIS [None]
  - STEVENS-JOHNSON SYNDROME [None]
  - TOXIC SHOCK SYNDROME STAPHYLOCOCCAL [None]
